FAERS Safety Report 6305146-9 (Version None)
Quarter: 2009Q3

REPORT INFORMATION
  Report Type: 
  Country: None (occurrence: None)
  Receive Date: 20090727
  Receipt Date: 20090401
  Transmission Date: 20100115
  Serious: No
  Sender: FDA-Public Use
  Company Number: 214666

PATIENT
  Age: 19 Year
  Sex: Female
  Weight: 60 kg

DRUGS (4)
  1. ROCURONIUM BROMIDE [Suspect]
     Dosage: 50 MG, ONCE, INTRAVENOUS
     Route: 042
     Dates: start: 20090311, end: 20090311
  2. FENTANYL [Concomitant]
  3. PROPOFOL [Concomitant]
  4. MIDAZOLAM HCL [Concomitant]

REACTIONS (2)
  - DRUG EFFECT PROLONGED [None]
  - NEUROMUSCULAR BLOCKADE REVERSAL [None]
